FAERS Safety Report 6447021-5 (Version None)
Quarter: 2009Q4

REPORT INFORMATION
  Report Type: 
  Country: None (occurrence: None)
  Receive Date: 20091119
  Receipt Date: 20091110
  Transmission Date: 20100525
  Serious: Yes (Death, Hospitalization)
  Sender: FDA-Public Use
  Company Number: JO-PFIZER INC-2009295387

PATIENT
  Age: 80 Year
  Sex: Female

DRUGS (3)
  1. SILDENAFIL CITRATE [Suspect]
     Indication: PULMONARY HYPERTENSION
     Dosage: 50 MG, 2X/DAY
     Route: 048
     Dates: start: 20091023
  2. TIENAM [Concomitant]
     Indication: INFECTION
  3. TAVANIC [Concomitant]

REACTIONS (1)
  - DEATH [None]
